FAERS Safety Report 6673677-8 (Version None)
Quarter: 2010Q1

REPORT INFORMATION
  Report Type: 
  Country: None (occurrence: None)
  Receive Date: 20100329
  Receipt Date: 20090926
  Transmission Date: 20100710
  Serious: Yes (Hospitalization)
  Sender: FDA-Public Use
  Company Number: 2009228919

PATIENT
  Age: 36 Year
  Sex: Male

DRUGS (1)
  1. GEODON [Suspect]
     Indication: PSYCHOTIC DISORDER
     Dosage: 80MG DAILY, ORAL
     Route: 048

REACTIONS (1)
  - TORTICOLLIS [None]
